FAERS Safety Report 5935793-5 (Version None)
Quarter: 2008Q4

REPORT INFORMATION
  Report Type: 
  Country: None (occurrence: None)
  Receive Date: 20081030
  Receipt Date: 20081019
  Transmission Date: 20090506
  Serious: Yes (Other)
  Sender: FDA-Public Use
  Company Number: PHHY2008DE14811

PATIENT
  Sex: Female
  Weight: 49 kg

DRUGS (4)
  1. ZOMETA [Suspect]
     Indication: METASTASES TO BONE
     Dosage: 4 MG, QMO
     Route: 042
     Dates: start: 20050427, end: 20080601
  2. ZOMETA [Suspect]
     Indication: BREAST CANCER
  3. ACETYLSALICYLIC ACID SRT [Concomitant]
  4. LEVOTHYROXINE SODIUM [Concomitant]

REACTIONS (8)
  - DENTAL CARE [None]
  - GINGIVITIS [None]
  - HIP SURGERY [None]
  - OSTEONECROSIS [None]
  - PURULENT DISCHARGE [None]
  - SEQUESTRECTOMY [None]
  - TOOTH EXTRACTION [None]
  - TUMOUR MARKER INCREASED [None]
